FAERS Safety Report 11457618 (Version 1)
Quarter: 2015Q3

REPORT INFORMATION
  Report Type: Spontaneous
  Country: IT (occurrence: IT)
  Receive Date: 20150904
  Receipt Date: 20150904
  Transmission Date: 20151125
  Serious: Yes (Hospitalization)
  Sender: FDA-Public Use
  Company Number: IT-AUROBINDO-AUR-APL-2015-07833

PATIENT
  Age: 46 Year
  Sex: Female

DRUGS (3)
  1. GABAPENTIN AUROBINDO 300MG CAPSULES [Suspect]
     Active Substance: GABAPENTIN
     Indication: NEURALGIA
     Dosage: 300 MG TOTAL
     Route: 048
     Dates: start: 20150613, end: 20150613
  2. ENTACT [Concomitant]
     Active Substance: ESCITALOPRAM OXALATE
     Indication: DEPRESSION
     Dosage: 20 MG/ML
     Route: 048
     Dates: start: 20150512
  3. DELORAZEPAM [Concomitant]
     Active Substance: DELORAZEPAM
     Indication: ANXIETY
     Route: 048
     Dates: start: 20150512

REACTIONS (5)
  - Presyncope [Recovering/Resolving]
  - Diarrhoea [Recovering/Resolving]
  - Chest pain [Recovering/Resolving]
  - Abdominal pain [Recovering/Resolving]
  - Formication [Recovering/Resolving]

NARRATIVE: CASE EVENT DATE: 20150613
